FAERS Safety Report 9134824 (Version 1)
Quarter: 2013Q1

REPORT INFORMATION
  Report Type: Spontaneous
  Country: US (occurrence: US)
  Receive Date: 20130304
  Receipt Date: 20130304
  Transmission Date: 20140127
  Serious: Yes (Other)
  Sender: FDA-Public Use
  Company Number: US-COVIDIEN/TYCO HEALTHCARE/MALLINCKRODT-T201300978

PATIENT
  Age: 88 Year
  Sex: Male
  Weight: 46.71 kg

DRUGS (2)
  1. FENTANYL TRANSDERMAL SYSTEM [Suspect]
     Indication: PAIN
     Dosage: 25 MCG/HR, Q 72 HOURS
     Route: 062
     Dates: start: 20130220, end: 20130221
  2. OXYCODONE/ACETAMINOPHEN [Suspect]
     Indication: BACK PAIN
     Dosage: 5/325 MG, 1 TAB Q 4 HRS
     Route: 048
     Dates: start: 20130122

REACTIONS (6)
  - Psychotic disorder [Recovered/Resolved]
  - Delusion [Recovered/Resolved]
  - Speech disorder [Recovered/Resolved]
  - Crying [Recovered/Resolved]
  - Restlessness [Recovered/Resolved]
  - Pain [Recovered/Resolved]
